FAERS Safety Report 9689783 (Version 1)
Quarter: 2013Q4

REPORT INFORMATION
  Report Type: Report from Study
  Country: GB (occurrence: GB)
  Receive Date: 20131115
  Receipt Date: 20131115
  Transmission Date: 20140711
  Serious: Yes (Other)
  Sender: FDA-Public Use
  Company Number: GB-JNJFOC-20131105885

PATIENT
  Age: 65 Year
  Sex: Male
  Weight: 86.6 kg

DRUGS (3)
  1. STELARA [Suspect]
     Indication: PSORIASIS
     Route: 058
     Dates: start: 20130716
  2. STELARA [Suspect]
     Indication: PSORIASIS
     Route: 058
     Dates: start: 20121113, end: 20130515
  3. THYROXINE [Concomitant]
     Route: 065
     Dates: start: 20080701

REACTIONS (1)
  - Prostate cancer [Recovered/Resolved]
